FAERS Safety Report 8287049-6 (Version None)
Quarter: 2012Q2

REPORT INFORMATION
  Report Type: 
  Country: None (occurrence: None)
  Receive Date: 20120416
  Receipt Date: 20120410
  Transmission Date: 20120825
  Serious: Yes (Other)
  Sender: FDA-Public Use
  Company Number: BR-BAYER-2012-035585

PATIENT
  Age: 21 Year
  Sex: Female

DRUGS (3)
  1. SELEN [Concomitant]
     Indication: CONTRACEPTION
     Dosage: 1 DF, QD
     Route: 048
     Dates: start: 20101001
  2. LEVOTHYROXINE SODIUM [Concomitant]
     Indication: THYROID DISORDER
     Dosage: 1 DF, QD
     Route: 048
     Dates: start: 20110101
  3. BETASERON [Suspect]
     Indication: PRIMARY PROGRESSIVE MULTIPLE SCLEROSIS
     Dosage: 1 ML, Q72HR
     Route: 058
     Dates: start: 20120322

REACTIONS (4)
  - HEADACHE [None]
  - PAIN IN EXTREMITY [None]
  - BINOCULAR EYE MOVEMENT DISORDER [None]
  - INJECTION SITE RASH [None]
